FAERS Safety Report 15903046 (Version 1)
Quarter: 2019Q1

REPORT INFORMATION
  Report Type: Spontaneous
  Country: US (occurrence: US)
  Receive Date: 20190202
  Receipt Date: 20190202
  Transmission Date: 20190417
  Serious: Yes (Death, Hospitalization)
  Sender: FDA-Public Use
  Company Number: US-B.I. PHARMACEUTICALS,INC./RIDGEFIELD-2019-BI-004425

PATIENT
  Sex: Female

DRUGS (3)
  1. SPIRIVA RESPIMAT [Suspect]
     Active Substance: TIOTROPIUM BROMIDE
     Indication: EMPHYSEMA
     Dosage: 2 INHALATIONS DAILY;  FORM STRENGTH: 2.5 MCG;  ACTION(S) TAKEN WITH PRODUCT: NOT APPLICABLE
     Route: 065
  2. COMBIVENT [Suspect]
     Active Substance: ALBUTEROL SULFATE\IPRATROPIUM BROMIDE
     Indication: EMPHYSEMA
     Dosage: FORM STRENGTH: 20 MCG / 100 MCG;  ACTION(S) TAKEN WITH PRODUCT: NOT REPORTED
     Route: 065
  3. SPIRIVA [Suspect]
     Active Substance: TIOTROPIUM BROMIDE MONOHYDRATE
     Indication: EMPHYSEMA
     Dosage: FORM STRENGTH: 18 MCG; FORMULATION: CAPSULE? ACTION(S) TAKEN WITH PRODUCT: NOT REPORTED
     Route: 065

REACTIONS (2)
  - Pneumonia [Fatal]
  - Carbon dioxide increased [Fatal]
